FAERS Safety Report 25107482 (Version 2)
Quarter: 2025Q2

REPORT INFORMATION
  Report Type: Spontaneous
  Country: JP (occurrence: JP)
  Receive Date: 20250321
  Receipt Date: 20250417
  Transmission Date: 20250716
  Serious: Yes (Hospitalization)
  Sender: MERCK SHARP AND DOHME
  Company Number: JP-009507513-2266172

PATIENT
  Age: 64 Year

DRUGS (2)
  1. KEYTRUDA [Suspect]
     Active Substance: PEMBROLIZUMAB
     Indication: Triple negative breast cancer
  2. CARBOPLATIN [Suspect]
     Active Substance: CARBOPLATIN
     Indication: Triple negative breast cancer

REACTIONS (3)
  - Vomiting [Unknown]
  - Neutrophil count decreased [Unknown]
  - Renal impairment [Unknown]
